FAERS Safety Report 20864490 (Version 1)
Quarter: 2022Q2

REPORT INFORMATION
  Report Type: Report from Study
  Country: US (occurrence: US)
  Receive Date: 20220524
  Receipt Date: 20220524
  Transmission Date: 20220721
  Serious: Yes (Hospitalization, Other)
  Sender: FDA-Public Use
  Company Number: US-SUN PHARMACEUTICAL INDUSTRIES LTD-2022R1-337432

PATIENT
  Age: 50 Year
  Sex: Male
  Weight: 101.3 kg

DRUGS (7)
  1. TEMOZOLOMIDE [Suspect]
     Active Substance: TEMOZOLOMIDE
     Indication: Glioblastoma
     Dosage: 160 MILLIGRAM, DAILY
     Route: 048
     Dates: start: 20210802, end: 20210912
  2. TEMOZOLOMIDE [Suspect]
     Active Substance: TEMOZOLOMIDE
     Dosage: 320 MILLIGRAM, DAILY
     Route: 048
     Dates: start: 20211011, end: 20211122
  3. GLASDEGIB [Suspect]
     Active Substance: GLASDEGIB
     Indication: Glioblastoma
     Dosage: 75 MILLIGRAM
     Route: 048
     Dates: start: 20210802
  4. DEXAMETHASONE [Concomitant]
     Active Substance: DEXAMETHASONE
     Indication: Glioblastoma
     Dosage: UNK
     Route: 065
     Dates: start: 20211011
  5. LANSOPRAZOLE [Concomitant]
     Active Substance: LANSOPRAZOLE
     Indication: Prophylaxis
     Dosage: UNK
     Route: 065
  6. DOMPERIDONE [Concomitant]
     Active Substance: DOMPERIDONE
     Indication: Prophylaxis
     Dosage: UNK
     Route: 065
     Dates: start: 20210816
  7. SERTRALINE [Concomitant]
     Active Substance: SERTRALINE HYDROCHLORIDE
     Indication: Depression
     Dosage: UNK
     Route: 065
     Dates: start: 20211205

REACTIONS (1)
  - Pneumonia [Recovered/Resolved]

NARRATIVE: CASE EVENT DATE: 20211216
